FAERS Safety Report 24303046 (Version 7)
Quarter: 2025Q1

REPORT INFORMATION
  Report Type: Report from Study
  Country: US (occurrence: US)
  Receive Date: 20240910
  Receipt Date: 20250108
  Transmission Date: 20250409
  Serious: Yes (Other)
  Sender: SUNOVION
  Company Number: US-SUMITOMO PHARMA SWITZERLAND GMBH-2024SPA001654

PATIENT

DRUGS (8)
  1. ORGOVYX [Suspect]
     Active Substance: RELUGOLIX
     Indication: Prostate cancer
     Dosage: 360 MG, SINGLE
     Route: 048
  2. ORGOVYX [Suspect]
     Active Substance: RELUGOLIX
     Dosage: 120 MG, QD
     Route: 048
  3. LISINOPRIL [Concomitant]
     Active Substance: LISINOPRIL
     Indication: Product used for unknown indication
     Route: 065
  4. RESTORIL [Concomitant]
     Active Substance: TEMAZEPAM
     Indication: Product used for unknown indication
     Route: 065
  5. VITAMINS [Concomitant]
     Active Substance: VITAMINS
     Indication: Product used for unknown indication
     Route: 065
  6. DICLOFENAC [Concomitant]
     Active Substance: DICLOFENAC
     Route: 065
  7. IBUPROFEN [Concomitant]
     Active Substance: IBUPROFEN
     Route: 065
  8. ADVIL [Concomitant]
     Active Substance: IBUPROFEN
     Route: 065

REACTIONS (14)
  - Radical prostatectomy [Unknown]
  - Loss of consciousness [Unknown]
  - Blood testosterone decreased [Unknown]
  - Urinary incontinence [Unknown]
  - Vomiting [Unknown]
  - Temperature intolerance [Unknown]
  - Dry mouth [Unknown]
  - COVID-19 [Unknown]
  - Fatigue [Unknown]
  - Hot flush [Unknown]
  - Insomnia [Unknown]
  - Asthenia [Unknown]
  - Arthralgia [Unknown]
  - Libido decreased [Unknown]
